FAERS Safety Report 4377503-1 (Version None)
Quarter: 2004Q2

REPORT INFORMATION
  Report Type: 
  Country: None (occurrence: None)
  Receive Date: 20040615
  Receipt Date: 20040608
  Transmission Date: 20050107
  Serious: Yes (Hospitalization, Other)
  Sender: FDA-Public Use
  Company Number: FR-BRISTOL-MYERS SQUIBB COMPANY-12609517

PATIENT
  Age: 41 Year
  Sex: Male

DRUGS (3)
  1. SUSTIVA [Suspect]
     Indication: HIV INFECTION
     Route: 048
     Dates: start: 20020627, end: 20030710
  2. VIDEX [Suspect]
     Indication: HIV INFECTION
     Route: 048
     Dates: start: 20020627, end: 20030710
  3. ZERIT [Suspect]
     Indication: HIV INFECTION
     Route: 048
     Dates: start: 20020627, end: 20030710

REACTIONS (9)
  - ALANINE AMINOTRANSFERASE INCREASED [None]
  - ASPARTATE AMINOTRANSFERASE INCREASED [None]
  - BLOOD ALKALINE PHOSPHATASE INCREASED [None]
  - BLOOD LACTIC ACID INCREASED [None]
  - GAMMA-GLUTAMYLTRANSFERASE INCREASED [None]
  - HEPATIC FIBROSIS [None]
  - HEPATITIS CHOLESTATIC [None]
  - HEPATOMEGALY [None]
  - JAUNDICE [None]
